FAERS Safety Report 12596822 (Version 1)
Quarter: 2016Q3

REPORT INFORMATION
  Report Type: Report from Study
  Country: US (occurrence: US)
  Receive Date: 20160726
  Receipt Date: 20160726
  Transmission Date: 20161109
  Serious: Yes (Hospitalization, Other)
  Sender: FDA-Public Use
  Company Number: US-BAYER-2016-074773

PATIENT
  Age: 69 Year
  Sex: Male

DRUGS (2)
  1. NEXAVAR [Suspect]
     Active Substance: SORAFENIB
     Indication: HEPATOCELLULAR CARCINOMA
     Dosage: 400 MG, BID
     Route: 048
     Dates: start: 2016
  2. NEXAVAR [Suspect]
     Active Substance: SORAFENIB
     Indication: HEPATOCELLULAR CARCINOMA
     Dosage: 400 MG, BID
     Route: 048
     Dates: start: 20160408, end: 2016

REACTIONS (8)
  - Mood altered [None]
  - Drug dose omission [None]
  - Blood glucose decreased [None]
  - Incorrect dose administered [None]
  - Weight decreased [None]
  - Frequent bowel movements [None]
  - Decreased appetite [None]
  - Rash macular [None]

NARRATIVE: CASE EVENT DATE: 2016
